FAERS Safety Report 23196117 (Version 1)
Quarter: 2023Q4

REPORT INFORMATION
  Report Type: Spontaneous
  Country: US (occurrence: US)
  Receive Date: 20231117
  Receipt Date: 20231117
  Transmission Date: 20240109
  Serious: Yes (Hospitalization)
  Sender: FDA-Public Use
  Company Number: US-MYLANLABS-2023M1122508

PATIENT
  Age: 7 Year
  Sex: Male

DRUGS (6)
  1. DIPHENHYDRAMINE [Suspect]
     Active Substance: DIPHENHYDRAMINE
     Indication: Anaphylactic reaction
     Dosage: 37 MILLIGRAM
     Route: 042
  2. DEXTROMETHORPHAN HYDROBROMIDE;DOXYLAMINE SUCCINATE [Concomitant]
     Indication: Oropharyngeal pain
     Dosage: UNK, OVER-THE-COUNTER (OTC) LIQUID COUGH AND COLD MEDICATION COMPRISED??..
     Route: 065
  3. LORAZEPAM [Concomitant]
     Active Substance: LORAZEPAM
     Indication: Generalised tonic-clonic seizure
     Dosage: 2 MILLIGRAM
     Route: 042
  4. LEVETIRACETAM [Concomitant]
     Active Substance: LEVETIRACETAM
     Indication: Generalised tonic-clonic seizure
     Dosage: 20 MILLIGRAM/KILOGRAM
     Route: 065
  5. DEXAMETHASONE [Concomitant]
     Active Substance: DEXAMETHASONE
     Indication: Symptomatic treatment
     Dosage: 12 MILLIGRAM
     Route: 065
  6. EPINEPHRINE [Concomitant]
     Active Substance: EPINEPHRINE
     Indication: Anaphylactic reaction
     Dosage: 0.3 MILLIGRAM
     Route: 030

REACTIONS (2)
  - Delirium [Recovered/Resolved]
  - Condition aggravated [Recovered/Resolved]
